FAERS Safety Report 5479161-1 (Version None)
Quarter: 2007Q4

REPORT INFORMATION
  Report Type: 
  Country: None (occurrence: None)
  Receive Date: 20071008
  Receipt Date: 20071001
  Transmission Date: 20080405
  Serious: Yes (Other)
  Sender: FDA-Public Use
  Company Number: PHNU2007DE03299

PATIENT
  Sex: Female

DRUGS (5)
  1. DIOVAN [Suspect]
     Dosage: UNK, UNK
     Route: 048
     Dates: start: 20070101
  2. ISOSORBIDE DINITRATE [Concomitant]
  3. ACETYLSALICYLIC ACID [Concomitant]
  4. THYRONAJOD [Concomitant]
  5. OSPUR D3 [Concomitant]

REACTIONS (6)
  - ALTERED STATE OF CONSCIOUSNESS [None]
  - COUGH [None]
  - DIARRHOEA [None]
  - FACE OEDEMA [None]
  - OCULAR HYPERAEMIA [None]
  - SLEEP DISORDER [None]
